FAERS Safety Report 5861571-1 (Version None)
Quarter: 2008Q3

REPORT INFORMATION
  Report Type: 
  Country: None (occurrence: None)
  Receive Date: 20080827
  Receipt Date: 20080611
  Transmission Date: 20090109
  Serious: No
  Sender: FDA-Public Use
  Company Number: US-ABBOTT-08P-163-0456626-00

PATIENT
  Sex: Female

DRUGS (10)
  1. NIASPAN [Suspect]
     Indication: BLOOD CHOLESTEROL INCREASED
     Route: 048
     Dates: start: 20080604, end: 20080607
  2. METOPROLOL TARTRATE [Concomitant]
     Indication: DRUG USE FOR UNKNOWN INDICATION
     Route: 048
  3. FENOFIBRATE [Concomitant]
     Indication: DRUG USE FOR UNKNOWN INDICATION
  4. MICARDIA [Concomitant]
     Indication: BLOOD PRESSURE
  5. ESOMEPRAZOLE MAGNESIUM [Concomitant]
     Indication: PROPHYLAXIS
     Route: 048
  6. ISONIAZID [Concomitant]
     Indication: DRUG USE FOR UNKNOWN INDICATION
  7. PRECRIA [Concomitant]
     Indication: DRUG USE FOR UNKNOWN INDICATION
  8. PREMENORAL [Concomitant]
     Indication: DRUG USE FOR UNKNOWN INDICATION
  9. WELCALL [Concomitant]
     Indication: DRUG USE FOR UNKNOWN INDICATION
  10. VAGINAL ESTROGENS [Concomitant]
     Indication: DRUG USE FOR UNKNOWN INDICATION

REACTIONS (3)
  - BURNING SENSATION [None]
  - ERYTHEMA [None]
  - FLUSHING [None]
